FAERS Safety Report 14348930 (Version 7)
Quarter: 2018Q3

REPORT INFORMATION
  Report Type: Spontaneous
  Country: DE (occurrence: DE)
  Receive Date: 20180104
  Receipt Date: 20180921
  Transmission Date: 20181010
  Serious: Yes (Hospitalization, Other)
  Sender: FDA-Public Use
  Company Number: DE-009507513-1801DEU000792

PATIENT
  Age: 78 Year
  Sex: Female

DRUGS (35)
  1. MIRTAZAPINE. [Suspect]
     Active Substance: MIRTAZAPINE
     Indication: PRODUCT USED FOR UNKNOWN INDICATION
     Dosage: 30 MG, UNK
     Route: 048
  2. ABILIFY [Suspect]
     Active Substance: ARIPIPRAZOLE
     Indication: PRODUCT USED FOR UNKNOWN INDICATION
     Dosage: 2.5 MG, UNK
     Route: 048
     Dates: start: 20140508, end: 20140514
  3. DIPYRONE [Suspect]
     Active Substance: DIPYRONE
     Dosage: 1000 MG, QD
     Route: 048
     Dates: start: 20140520, end: 20140521
  4. DIPYRONE [Suspect]
     Active Substance: DIPYRONE
     Dosage: 1500 MG, UNK
     Route: 048
  5. STILNOX [Suspect]
     Active Substance: ZOLPIDEM TARTRATE
     Indication: PRODUCT USED FOR UNKNOWN INDICATION
     Dosage: DOSAGE FORM: UNSPECIFIED
     Route: 048
     Dates: start: 20140527
  6. PIPAMPERONE [Suspect]
     Active Substance: PIPAMPERONE
     Dosage: 60 MG, QD
     Route: 048
     Dates: start: 20140515, end: 20140524
  7. PIPAMPERONE [Suspect]
     Active Substance: PIPAMPERONE
     Dosage: 80 MG, QD
     Route: 048
     Dates: start: 20140525, end: 20140526
  8. DUROGESIC [Suspect]
     Active Substance: FENTANYL
     Indication: PRODUCT USED FOR UNKNOWN INDICATION
     Dosage: DAILY DOSE: 75 ?G MICROGRAM(S) EVERY 3 DAY
     Route: 062
     Dates: start: 2012
  9. PANTOPRAZOLE [Concomitant]
     Active Substance: PANTOPRAZOLE
     Indication: PRODUCT USED FOR UNKNOWN INDICATION
     Dosage: 40 MG, EVERY DAY
     Route: 048
  10. AMLODIPINE [Concomitant]
     Active Substance: AMLODIPINE BESYLATE
     Indication: PRODUCT USED FOR UNKNOWN INDICATION
     Dosage: DAILY DOSE: 10 MG MILLIGRAM(S) EVERY DAY
     Route: 048
     Dates: start: 2011
  11. DIPYRONE [Suspect]
     Active Substance: DIPYRONE
     Dosage: 1000 MG, QD
     Route: 048
     Dates: start: 20140523, end: 20140525
  12. DIPYRONE [Suspect]
     Active Substance: DIPYRONE
     Dosage: 500 MG, QD
     Route: 048
     Dates: start: 20140526, end: 20140528
  13. VENLAFAXINE HYDROCHLORIDE. [Concomitant]
     Active Substance: VENLAFAXINE HYDROCHLORIDE
     Indication: PRODUCT USED FOR UNKNOWN INDICATION
     Dosage: 30 MG, UNK
     Route: 048
     Dates: start: 2012
  14. FORMOTEROL FUMARATE [Concomitant]
     Active Substance: FORMOTEROL FUMARATE
     Indication: PRODUCT USED FOR UNKNOWN INDICATION
     Dosage: DAILY DOSE: 1 DF DOSAGE FORM EVERY DAY
     Route: 065
     Dates: start: 20131201
  15. INSULIN [Concomitant]
     Active Substance: INSULIN NOS
     Indication: PRODUCT USED FOR UNKNOWN INDICATION
     Dosage: DAILY DOSE: 60 IU INTERNATIONAL UNIT(S) EVERY DAY
     Route: 058
  16. DIPYRONE [Suspect]
     Active Substance: DIPYRONE
     Dosage: 2000 MG, QD
     Route: 048
     Dates: start: 20140518, end: 20140519
  17. DIPYRONE [Suspect]
     Active Substance: DIPYRONE
     Dosage: 500 MG, QD
     Route: 048
     Dates: start: 20140522, end: 20140522
  18. PIPAMPERONE [Suspect]
     Active Substance: PIPAMPERONE
     Dosage: 120 MG, QD
     Route: 048
     Dates: start: 20140527, end: 20140527
  19. POLYETHYLENE GLYCOL [Concomitant]
     Active Substance: POLYETHYLENE GLYCOLS
     Indication: PRODUCT USED FOR UNKNOWN INDICATION
     Dosage: DAILY DOSE: 1 DF DOSAGE FORM EVERY DAY
     Route: 048
     Dates: start: 2011
  20. RESONIUM [Concomitant]
     Active Substance: SODIUM POLYSTYRENE SULFONATE
     Indication: PRODUCT USED FOR UNKNOWN INDICATION
     Dosage: DOSAGE FORM: UNSPECIFIED, 2 TABLE SPOON
     Route: 048
     Dates: start: 20140528
  21. DIAZEPAM. [Suspect]
     Active Substance: DIAZEPAM
     Dosage: DOSAGE FORM: UNSPECIFIED, IN NIGHTS 26/27?MAY?2014 AND 27/28?MAY?2014 IN TOTAL 30 MG IN 26 HOURS
     Route: 030
  22. ABILIFY [Suspect]
     Active Substance: ARIPIPRAZOLE
     Dosage: 5 MG, UNK
     Route: 048
     Dates: start: 20140515, end: 20140520
  23. LISINOPRIL. [Suspect]
     Active Substance: LISINOPRIL
     Dosage: 2.5 UNK, UNK
     Route: 048
     Dates: start: 20140524
  24. FOLIC ACID. [Concomitant]
     Active Substance: FOLIC ACID
     Indication: PRODUCT USED FOR UNKNOWN INDICATION
     Dosage: DAILY DOSE: 5 MG MILLIGRAM(S) EVERY DAY
     Route: 048
     Dates: start: 20140502
  25. SIMVASTATIN. [Concomitant]
     Active Substance: SIMVASTATIN
     Indication: PRODUCT USED FOR UNKNOWN INDICATION
     Dosage: DAILY DOSE: 10 MG MILLIGRAM(S) EVERY DAY
     Route: 048
     Dates: start: 20140201
  26. DIAZEPAM. [Suspect]
     Active Substance: DIAZEPAM
     Indication: RESTLESSNESS
     Dosage: DOSAGE FORM: UNSPECIFIED, SINCE YEARS
     Route: 048
     Dates: start: 20140526, end: 20140528
  27. PIPAMPERONE [Suspect]
     Active Substance: PIPAMPERONE
     Dosage: 20 MG, QD
     Route: 048
     Dates: start: 20140528, end: 20140528
  28. DIPYRONE [Suspect]
     Active Substance: DIPYRONE
     Indication: PRODUCT USED FOR UNKNOWN INDICATION
     Dosage: DOSAGE FORM: UNSPECIFIED, 500?1000 MG
     Route: 048
     Dates: start: 20140502, end: 20140516
  29. DIPYRONE [Suspect]
     Active Substance: DIPYRONE
     Dosage: 500 MG, QD
     Route: 048
     Dates: start: 20140530, end: 20140530
  30. LISINOPRIL. [Suspect]
     Active Substance: LISINOPRIL
     Indication: PRODUCT USED FOR UNKNOWN INDICATION
     Dosage: 5 MG, UNK
     Route: 048
     Dates: start: 20140520, end: 20140520
  31. PIPAMPERONE [Suspect]
     Active Substance: PIPAMPERONE
     Dosage: 40 MG, QD
     Route: 048
     Dates: start: 20140510, end: 20140513
  32. DIPYRONE [Suspect]
     Active Substance: DIPYRONE
     Dosage: 1500 MG, UNK (DOSAGE FORM: UNSPECIFIED, 500?1000 MG)
     Route: 048
     Dates: start: 20170517, end: 20170517
  33. PIPAMPERONE [Suspect]
     Active Substance: PIPAMPERONE
     Indication: PRODUCT USED FOR UNKNOWN INDICATION
     Dosage: 20 MG, QD
     Route: 048
     Dates: start: 20140508, end: 20140509
  34. CLOPIDOGREL [Concomitant]
     Active Substance: CLOPIDOGREL BISULFATE
     Indication: PRODUCT USED FOR UNKNOWN INDICATION
     Dosage: DAILY DOSE: 75 MG MILLIGRAM(S) EVERY DAY
     Route: 048
     Dates: start: 2011
  35. PREDNISOLON [Concomitant]
     Active Substance: PREDNISOLONE
     Indication: PRODUCT USED FOR UNKNOWN INDICATION
     Dosage: DOSAGE FORM: UNSPECIFIED
     Route: 048
     Dates: start: 20140528

REACTIONS (14)
  - Syncope [Recovered/Resolved]
  - Fall [Unknown]
  - Prescribed underdose [Unknown]
  - Hypokalaemia [Unknown]
  - Myoclonus [Unknown]
  - Drug interaction [Unknown]
  - Restlessness [Unknown]
  - Facial nerve disorder [Unknown]
  - Rash [Unknown]
  - Dysarthria [Unknown]
  - Loss of consciousness [Recovered/Resolved]
  - Left ventricular hypertrophy [Unknown]
  - Diarrhoea [Unknown]
  - Pancytopenia [Recovered/Resolved]

NARRATIVE: CASE EVENT DATE: 20140519
